FAERS Safety Report 11770539 (Version 2)
Quarter: 2015Q4

REPORT INFORMATION
  Report Type: Spontaneous
  Country: US (occurrence: US)
  Receive Date: 20151123
  Receipt Date: 20151123
  Transmission Date: 20160304
  Serious: No
  Sender: FDA-Public Use
  Company Number: US-PERRIGO-15US009787

PATIENT
  Age: 74 Year
  Sex: Female
  Weight: 49.89 kg

DRUGS (5)
  1. ALPRAZOLAM. [Concomitant]
     Active Substance: ALPRAZOLAM
     Indication: HEART RATE INCREASED
     Dosage: 1 MG
     Route: 065
     Dates: start: 2013
  2. METOPROLOL [Concomitant]
     Active Substance: METOPROLOL
     Indication: HEART RATE INCREASED
     Dosage: 25 MG
     Route: 065
     Dates: start: 20150901
  3. POLYETHYLENE GLYCOL 3350. [Suspect]
     Active Substance: POLYETHYLENE GLYCOL 3350
     Indication: CONSTIPATION
     Dosage: 17 G, ON TUESDAY, THURSDAY AND SATURDAY
     Route: 048
     Dates: start: 201409
  4. METAMUCIL [Concomitant]
     Active Substance: PLANTAGO SEED
     Indication: SUPPLEMENTATION THERAPY
     Dosage: UNK
     Route: 065
     Dates: start: 201409
  5. TEMAZEPAM. [Concomitant]
     Active Substance: TEMAZEPAM
     Indication: INSOMNIA
     Dosage: UNK
     Route: 065
     Dates: start: 2013

REACTIONS (1)
  - Diarrhoea [Recovered/Resolved]

NARRATIVE: CASE EVENT DATE: 20150827
